FAERS Safety Report 24906599 (Version 1)
Quarter: 2025Q1

REPORT INFORMATION
  Report Type: Spontaneous
  Country: US (occurrence: US)
  Receive Date: 20250130
  Receipt Date: 20250130
  Transmission Date: 20250408
  Serious: Yes (Hospitalization)
  Sender: LUNDBECK
  Company Number: US-LUNDBECK-DKLU4010000

PATIENT

DRUGS (4)
  1. SABRIL [Suspect]
     Active Substance: VIGABATRIN
     Indication: Epilepsy
     Dosage: 20 MILLILITRE
     Route: 048
     Dates: start: 202408
  2. SABRIL [Suspect]
     Active Substance: VIGABATRIN
     Indication: Infantile spasms
  3. KEPPRA [Concomitant]
     Active Substance: LEVETIRACETAM
     Indication: Product used for unknown indication
  4. MILK OF MAGNESIA [Concomitant]
     Active Substance: MAGNESIUM HYDROXIDE
     Indication: Product used for unknown indication

REACTIONS (2)
  - Seizure [Unknown]
  - Infantile spasms [Unknown]
